FAERS Safety Report 8699218 (Version 4)
Quarter: 2013Q1

REPORT INFORMATION
  Report Type: Spontaneous
  Country: US (occurrence: US)
  Receive Date: 20120802
  Receipt Date: 20130128
  Transmission Date: 20140127
  Serious: Yes (Hospitalization)
  Sender: FDA-Public Use
  Company Number: PHEH2012US014616

PATIENT
  Sex: Male

DRUGS (1)
  1. MYFORTIC [Suspect]
     Indication: RENAL TRANSPLANT
     Dosage: 360 MG, BID
     Route: 048

REACTIONS (10)
  - Gout [Unknown]
  - Joint swelling [Unknown]
  - Abasia [Unknown]
  - Diverticulitis [Unknown]
  - Gingival infection [Unknown]
  - Tooth infection [Unknown]
  - Kidney infection [Unknown]
  - Clostridium difficile infection [Unknown]
  - Urine abnormality [Unknown]
  - Tremor [Unknown]
